FAERS Safety Report 9027262 (Version 1)
Quarter: 2013Q1

REPORT INFORMATION
  Report Type: Spontaneous
  Country: DE (occurrence: ES)
  Receive Date: 20130123
  Receipt Date: 20130123
  Transmission Date: 20140127
  Serious: Yes (Other)
  Sender: FDA-Public Use
  Company Number: ES-FRI-1000041903

PATIENT
  Age: 78 Year
  Sex: Male

DRUGS (2)
  1. MEMANTINE [Suspect]
     Indication: COGNITIVE DISORDER
     Dosage: 5 MG
     Route: 048
     Dates: start: 20121110, end: 20121119
  2. EXELON [Concomitant]
     Route: 062

REACTIONS (1)
  - Parkinsonian gait [Recovered/Resolved]
